FAERS Safety Report 9386995 (Version 1)
Quarter: 2013Q3

REPORT INFORMATION
  Report Type: Spontaneous
  Country: NO (occurrence: NO)
  Receive Date: 20130708
  Receipt Date: 20130708
  Transmission Date: 20140515
  Serious: Yes (Disabling)
  Sender: FDA-Public Use
  Company Number: NO-JNJFOC-20130618346

PATIENT
  Sex: Male

DRUGS (4)
  1. REMICADE [Suspect]
     Indication: CROHN^S DISEASE
     Route: 042
     Dates: start: 201104
  2. REMICADE [Suspect]
     Indication: CROHN^S DISEASE
     Route: 042
     Dates: start: 201108, end: 201203
  3. IMUREL [Concomitant]
     Route: 048
     Dates: start: 201012, end: 201107
  4. PREDNISOLON [Concomitant]
     Route: 048
     Dates: start: 201012, end: 201203

REACTIONS (1)
  - Psoriasis [Recovering/Resolving]
